FAERS Safety Report 17641206 (Version 1)
Quarter: 2020Q2

REPORT INFORMATION
  Report Type: Spontaneous
  Country: CN (occurrence: CN)
  Receive Date: 20200408
  Receipt Date: 20200408
  Transmission Date: 20200713
  Serious: Yes (Other)
  Sender: FDA-Public Use
  Company Number: ALC2020CN002785

PATIENT
  Age: 59 Year
  Sex: Female

DRUGS (1)
  1. FLUORESCITE [Suspect]
     Active Substance: FLUORESCEIN SODIUM
     Indication: OPHTHALMOLOGICAL EXAMINATION
     Dosage: 0.5 G, QD
     Route: 042
     Dates: start: 20200327, end: 20200327

REACTIONS (1)
  - Anaphylactic shock [Recovered/Resolved]

NARRATIVE: CASE EVENT DATE: 20200327
